FAERS Safety Report 9696215 (Version 1)
Quarter: 2013Q4

REPORT INFORMATION
  Report Type: Spontaneous
  Country: DE (occurrence: DE)
  Receive Date: 20131119
  Receipt Date: 20131119
  Transmission Date: 20140711
  Serious: Yes (Hospitalization)
  Sender: FDA-Public Use
  Company Number: GXKR2013DE003616

PATIENT
  Sex: 0

DRUGS (4)
  1. CARBAMAZEPINE [Suspect]
     Dosage: 600 MG, UNK
     Route: 048
     Dates: start: 20130818, end: 20130831
  2. DIAZEPAM [Concomitant]
     Route: 048
     Dates: start: 20130829, end: 20130904
  3. CLONIDIN [Concomitant]
     Indication: HYPERTENSION
     Dosage: SEIT 2 JAHREN
     Route: 048
  4. PANTOZOL [Concomitant]
     Dosage: 40 MG, UNK
     Route: 048
     Dates: start: 20130819

REACTIONS (1)
  - Dermatitis allergic [Unknown]
